FAERS Safety Report 18716770 (Version 1)
Quarter: 2021Q1

REPORT INFORMATION
  Report Type: Spontaneous
  Country: US (occurrence: US)
  Receive Date: 20210108
  Receipt Date: 20210108
  Transmission Date: 20210419
  Serious: Yes (Hospitalization, Other)
  Sender: FDA-Public Use
  Company Number: US-009507513-2101USA001177

PATIENT
  Age: 63 Year
  Sex: Female

DRUGS (5)
  1. FOSAMAX [Suspect]
     Active Substance: ALENDRONATE SODIUM
     Dosage: UNK
     Route: 065
  2. ENBREL [Suspect]
     Active Substance: ETANERCEPT
     Dosage: 50 MG, QWK; SOLUTION FOR INJECTION IN PRE?FILLED SYRINGE
     Route: 065
     Dates: start: 2017
  3. ENBREL [Suspect]
     Active Substance: ETANERCEPT
     Indication: RHEUMATOID ARTHRITIS
     Dosage: SOLUTION FOR INJECTION IN PRE?FILLED PEN
  4. ENBREL [Suspect]
     Active Substance: ETANERCEPT
     Indication: RHEUMATOID ARTHRITIS
     Dosage: 50 MG, QWK; SOLUTION FOR INJECTION IN PRE?FILLED SYRINGE
     Route: 065
     Dates: start: 2000
  5. ENBREL [Suspect]
     Active Substance: ETANERCEPT
     Dosage: 50 MG, QWK; SOLUTION FOR INJECTION IN PRE?FILLED SYRINGE
     Route: 065
     Dates: start: 201706

REACTIONS (14)
  - Increased tendency to bruise [Unknown]
  - Gait disturbance [Unknown]
  - Bronchitis [Recovered/Resolved]
  - Device breakage [Unknown]
  - Femur fracture [Recovered/Resolved]
  - Skin disorder [Unknown]
  - Injection site bruising [Unknown]
  - Musculoskeletal disorder [Not Recovered/Not Resolved]
  - Poor quality product administered [Unknown]
  - Injection site pain [Unknown]
  - Oral infection [Recovered/Resolved]
  - Adenocarcinoma [Recovered/Resolved]
  - Injection site haemorrhage [Unknown]
  - Product storage error [Unknown]

NARRATIVE: CASE EVENT DATE: 2009
